FAERS Safety Report 9155248 (Version 2)
Quarter: 2013Q1

REPORT INFORMATION
  Report Type: Spontaneous
  Country: DK (occurrence: None)
  Receive Date: 20130206
  Receipt Date: 20130228
  Transmission Date: 20140127
  Serious: Yes (Hospitalization, Other)
  Sender: FDA-Public Use
  Company Number: ACO_34043_2013

PATIENT
  Age: 37 Year
  Sex: Female

DRUGS (10)
  1. FAMPRIDINE-SR (FAMPRIDINE) TABLET [Suspect]
     Indication: MULTIPLE SCLEROSIS
     Route: 048
     Dates: start: 20120515
  2. GILENYA (FINGOLIMOD HYDROCHLORIDE) [Concomitant]
  3. MIRTAZAPINE (MIRTAZAPINE) [Concomitant]
  4. CITALOPRAM (CITALOPRAM HYDROBROMDE) [Concomitant]
  5. GABAPENTIN (GABAPENTIN) [Concomitant]
  6. BACLOFEN (BACLOFEN) (BACLOFEN) [Concomitant]
  7. VALDOXAN (AGOMELATINE) [Concomitant]
  8. SIRDALUD MR (TIZANIDINE HYDROCHLORIDE) [Concomitant]
  9. DOLOL (TRAMADOL) [Concomitant]
  10. IMOVANE (ZOPICLONE) [Concomitant]

REACTIONS (7)
  - Trigeminal neuralgia [None]
  - Condition aggravated [None]
  - Drug ineffective [None]
  - Mental disorder [None]
  - Muscle spasms [None]
  - Breakthrough pain [None]
  - Sleep disorder [None]
